FAERS Safety Report 14134778 (Version 2)
Quarter: 2017Q4

REPORT INFORMATION
  Report Type: Spontaneous
  Country: JP (occurrence: JP)
  Receive Date: 20171027
  Receipt Date: 20171115
  Transmission Date: 20180321
  Serious: Yes (Hospitalization)
  Sender: FDA-Public Use
  Company Number: JP-ALLERGAN-1760607US

PATIENT
  Age: 29 Year
  Sex: Female

DRUGS (1)
  1. ESCITALOPRAM OXALATE - BP [Suspect]
     Active Substance: ESCITALOPRAM OXALATE
     Indication: DEPRESSION
     Dosage: 120 MG ONCE
     Route: 048
     Dates: start: 20170906, end: 20170906

REACTIONS (2)
  - Urinary retention [Unknown]
  - Overdose [Unknown]

NARRATIVE: CASE EVENT DATE: 20170906
